FAERS Safety Report 7921508-8 (Version None)
Quarter: 2011Q4

REPORT INFORMATION
  Report Type: 
  Country: None (occurrence: None)
  Receive Date: 20111117
  Receipt Date: 20111108
  Transmission Date: 20120403
  Serious: Yes (Hospitalization)
  Sender: FDA-Public Use
  Company Number: JP-ABBOTT-11P-087-0857873-00

PATIENT
  Age: 71 Year
  Sex: Male

DRUGS (12)
  1. LEUPROLIDE ACETATE [Suspect]
     Indication: PROSTATE CANCER
     Route: 058
     Dates: start: 20110318, end: 20110318
  2. ZOMETA [Concomitant]
     Route: 050
     Dates: start: 20110415, end: 20110415
  3. ADOAIR [Concomitant]
     Indication: PRODUCT USED FOR UNKNOWN INDICATION
     Route: 055
     Dates: start: 20110225
  4. MUCODYNE [Concomitant]
     Indication: PRODUCT USED FOR UNKNOWN INDICATION
     Route: 048
     Dates: start: 20110225
  5. ZOMETA [Concomitant]
     Route: 050
     Dates: start: 20110527, end: 20110527
  6. FAMOTIDINE [Concomitant]
     Indication: PRODUCT USED FOR UNKNOWN INDICATION
     Route: 048
     Dates: start: 20110527
  7. CASODEX [Concomitant]
     Indication: PROSTATE CANCER
     Route: 048
     Dates: start: 20110225, end: 20110708
  8. ZOMETA [Concomitant]
     Indication: PRODUCT USED FOR UNKNOWN INDICATION
     Route: 050
     Dates: start: 20110318, end: 20110318
  9. ZOMETA [Concomitant]
     Route: 050
     Dates: start: 20110708, end: 20110708
  10. LEUPROLIDE ACETATE [Suspect]
     Indication: PROSTATE CANCER
     Route: 058
     Dates: start: 20110415, end: 20110708
  11. NORVASC [Concomitant]
     Indication: PRODUCT USED FOR UNKNOWN INDICATION
     Route: 048
     Dates: start: 20110225
  12. ZESTRIL [Concomitant]
     Indication: PRODUCT USED FOR UNKNOWN INDICATION
     Route: 048
     Dates: start: 20110225

REACTIONS (1)
  - INTERSTITIAL LUNG DISEASE [None]
